FAERS Safety Report 23319991 (Version 1)
Quarter: 2023Q4

REPORT INFORMATION
  Report Type: Spontaneous
  Country: US (occurrence: US)
  Receive Date: 20231220
  Receipt Date: 20231220
  Transmission Date: 20240110
  Serious: No
  Sender: FDA-Public Use
  Company Number: US-ALMIRALL-US-2023-4546

PATIENT
  Age: 59 Year
  Sex: Female

DRUGS (1)
  1. KLISYRI [Suspect]
     Active Substance: TIRBANIBULIN
     Indication: Actinic keratosis
     Route: 061
     Dates: end: 202312

REACTIONS (2)
  - Blister [Unknown]
  - Insomnia [Unknown]

NARRATIVE: CASE EVENT DATE: 20231212
